FAERS Safety Report 13678266 (Version 1)
Quarter: 2017Q2

REPORT INFORMATION
  Report Type: Spontaneous
  Country: US (occurrence: US)
  Receive Date: 20170621
  Receipt Date: 20170621
  Transmission Date: 20170830
  Serious: Yes (Life-Threatening, Hospitalization, Disabling, Other)
  Sender: FDA-Public Use
  Company Number: None

PATIENT
  Age: 60 Year
  Sex: Male
  Weight: 99 kg

DRUGS (1)
  1. XANAX [Suspect]
     Active Substance: ALPRAZOLAM
     Indication: ANXIETY

REACTIONS (18)
  - Impaired work ability [None]
  - Suicidal ideation [None]
  - Sleep disorder [None]
  - Headache [None]
  - Depersonalisation/derealisation disorder [None]
  - Seizure [None]
  - Drug tolerance [None]
  - Hallucination [None]
  - Depression [None]
  - Cognitive disorder [None]
  - Anxiety [None]
  - Loss of consciousness [None]
  - Fear [None]
  - Drug dose omission [None]
  - Derealisation [None]
  - Indifference [None]
  - Emotional disorder [None]
  - Mental disorder [None]

NARRATIVE: CASE EVENT DATE: 20101013
